FAERS Safety Report 8222533-2 (Version None)
Quarter: 2012Q1

REPORT INFORMATION
  Report Type: 
  Country: None (occurrence: None)
  Receive Date: 20120320
  Receipt Date: 20120314
  Transmission Date: 20120608
  Serious: No
  Sender: FDA-Public Use
  Company Number: US-PFIZER INC-2012051650

PATIENT
  Sex: Female
  Weight: 68 kg

DRUGS (6)
  1. LIPITOR [Suspect]
     Indication: BLOOD CHOLESTEROL INCREASED
     Dosage: 10 MG, 2X/DAY
     Route: 048
     Dates: start: 19980401
  2. AMLODIPINE [Concomitant]
     Indication: HYPERTENSION
     Dosage: UNK
  3. HYDROCHLOROTHIAZIDE [Concomitant]
     Indication: HYPERTENSION
     Dosage: UNK
  4. LIPITOR [Suspect]
     Dosage: UNK
     Route: 048
  5. BENICAR [Concomitant]
     Indication: HYPERTENSION
     Dosage: UNK
  6. CLONIDINE [Concomitant]
     Indication: HYPERTENSION
     Dosage: UNK

REACTIONS (2)
  - NEUROPATHY PERIPHERAL [None]
  - BLOOD TRIGLYCERIDES INCREASED [None]
